FAERS Safety Report 21106102 (Version 1)
Quarter: 2022Q3

REPORT INFORMATION
  Report Type: Spontaneous
  Country: US (occurrence: US)
  Receive Date: 20220720
  Receipt Date: 20220720
  Transmission Date: 20221027
  Serious: No
  Sender: FDA-Public Use
  Company Number: US-BRISTOL-MYERS SQUIBB COMPANY-2022-074450

PATIENT
  Age: 61 Year
  Sex: Female

DRUGS (1)
  1. OPDIVO [Suspect]
     Active Substance: NIVOLUMAB
     Indication: Laryngeal cancer
     Dosage: FREQ : UNAVAILABLE ?STRENGTH: 480 MG FOR 28 DAYS, 2 X 240 MG
     Route: 065

REACTIONS (1)
  - Adverse event [Unknown]
